FAERS Safety Report 8363514-8 (Version None)
Quarter: 2012Q2

REPORT INFORMATION
  Report Type: 
  Country: None (occurrence: None)
  Receive Date: 20120516
  Receipt Date: 20120514
  Transmission Date: 20120825
  Serious: No
  Sender: FDA-Public Use
  Company Number: US-PFIZER INC-2012116826

PATIENT
  Sex: Female
  Weight: 74.83 kg

DRUGS (1)
  1. PROTONIX [Suspect]
     Indication: GASTROOESOPHAGEAL REFLUX DISEASE
     Dosage: 40 MG, DAILY
     Dates: start: 20120511, end: 20120511

REACTIONS (5)
  - DYSPEPSIA [None]
  - NAUSEA [None]
  - THROAT IRRITATION [None]
  - DIARRHOEA [None]
  - CHEST PAIN [None]
